FAERS Safety Report 4684198-6 (Version None)
Quarter: 2005Q2

REPORT INFORMATION
  Report Type: 
  Country: None (occurrence: None)
  Receive Date: 20050607
  Receipt Date: 20050525
  Transmission Date: 20051028
  Serious: Yes (Hospitalization)
  Sender: FDA-Public Use
  Company Number: IT-GLAXOSMITHKLINE-B0383228A

PATIENT
  Age: 62 Year
  Sex: Male

DRUGS (4)
  1. AUGMENTIN [Suspect]
     Dosage: 1G TWICE PER DAY
     Route: 048
     Dates: start: 20050301
  2. OMEPRAZOLE [Concomitant]
     Indication: DRUG USE FOR UNKNOWN INDICATION
     Dosage: 20MG PER DAY
     Route: 048
     Dates: start: 20050301
  3. ZITHROMAX [Concomitant]
     Indication: DRUG USE FOR UNKNOWN INDICATION
     Dates: start: 20050201
  4. TROZOCINA [Concomitant]
     Indication: DRUG USE FOR UNKNOWN INDICATION
     Dates: start: 20050301

REACTIONS (1)
  - GASTROINTESTINAL HAEMORRHAGE [None]
